FAERS Safety Report 18213547 (Version 1)
Quarter: 2020Q3

REPORT INFORMATION
  Report Type: Spontaneous
  Country: US (occurrence: US)
  Receive Date: 20200831
  Receipt Date: 20200831
  Transmission Date: 20201103
  Serious: No
  Sender: FDA-Public Use
  Company Number: US-PFIZER INC-2020333381

PATIENT
  Sex: Female

DRUGS (12)
  1. XELODA [Suspect]
     Active Substance: CAPECITABINE
     Indication: BREAST CANCER METASTATIC
  2. GEMZAR [Suspect]
     Active Substance: GEMCITABINE HYDROCHLORIDE
     Indication: BREAST CANCER METASTATIC
  3. FULVESTRANT. [Suspect]
     Active Substance: FULVESTRANT
     Indication: BREAST CANCER METASTATIC
  4. GEMZAR [Suspect]
     Active Substance: GEMCITABINE HYDROCHLORIDE
     Indication: GASTROINTESTINAL STROMAL TUMOUR
     Dosage: UNK, (50%)
  5. XELODA [Suspect]
     Active Substance: CAPECITABINE
     Indication: GASTROINTESTINAL STROMAL TUMOUR
     Dosage: UNK
  6. LETROZOLE. [Suspect]
     Active Substance: LETROZOLE
     Indication: BREAST CANCER METASTATIC
  7. FULVESTRANT. [Suspect]
     Active Substance: FULVESTRANT
     Indication: GASTROINTESTINAL STROMAL TUMOUR
     Dosage: UNK
  8. IBRANCE [Suspect]
     Active Substance: PALBOCICLIB
     Indication: BREAST CANCER METASTATIC
  9. CARBOPLATIN. [Suspect]
     Active Substance: CARBOPLATIN
     Indication: BREAST CANCER METASTATIC
  10. IBRANCE [Suspect]
     Active Substance: PALBOCICLIB
     Indication: GASTROINTESTINAL STROMAL TUMOUR
     Dosage: UNK
  11. CARBOPLATIN. [Suspect]
     Active Substance: CARBOPLATIN
     Indication: GASTROINTESTINAL STROMAL TUMOUR
     Dosage: UNK, (2 UNITS)
  12. LETROZOLE. [Suspect]
     Active Substance: LETROZOLE
     Indication: GASTROINTESTINAL STROMAL TUMOUR
     Dosage: UNK

REACTIONS (2)
  - Neoplasm progression [Unknown]
  - Liver disorder [Unknown]
